FAERS Safety Report 9229019 (Version 1)
Quarter: 2013Q2

REPORT INFORMATION
  Report Type: Spontaneous
  Country: CH (occurrence: CH)
  Receive Date: 20130412
  Receipt Date: 20130412
  Transmission Date: 20140414
  Serious: Yes (Other)
  Sender: FDA-Public Use
  Company Number: CH-ASTRAZENECA-2013SE22180

PATIENT
  Age: 40 Year
  Sex: Female

DRUGS (4)
  1. ESOMEP [Suspect]
     Indication: GASTROOESOPHAGEAL REFLUX DISEASE
     Route: 048
  2. COPAXONE [Suspect]
     Indication: MULTIPLE SCLEROSIS
     Route: 058
     Dates: start: 20120817
  3. DESLORATADINE-MEPHA [Concomitant]
     Route: 048
     Dates: start: 20130315
  4. FENIALLERG [Concomitant]
     Indication: HYPERSENSITIVITY

REACTIONS (1)
  - Type I hypersensitivity [Not Recovered/Not Resolved]
